FAERS Safety Report 7625145-4 (Version None)
Quarter: 2011Q3

REPORT INFORMATION
  Report Type: 
  Country: None (occurrence: None)
  Receive Date: 20110721
  Receipt Date: 20110712
  Transmission Date: 20111222
  Serious: No
  Sender: FDA-Public Use
  Company Number: US-BIOGENIDEC-2011BI026022

PATIENT
  Sex: Female

DRUGS (3)
  1. AVONEX [Suspect]
     Route: 030
     Dates: start: 20030101
  2. LISINOPRIL [Concomitant]
     Indication: HYPERTENSION
  3. AVONEX [Suspect]
     Indication: MULTIPLE SCLEROSIS
     Route: 030
     Dates: start: 20011005, end: 20030101

REACTIONS (2)
  - BLOOD CHOLESTEROL INCREASED [None]
  - LIVER FUNCTION TEST ABNORMAL [None]
